FAERS Safety Report 25879621 (Version 1)
Quarter: 2025Q4

REPORT INFORMATION
  Report Type: Spontaneous
  Country: US (occurrence: US)
  Receive Date: 20251003
  Receipt Date: 20251003
  Transmission Date: 20260117
  Serious: Yes (Hospitalization)
  Sender: MERCK SHARP & DOHME LLC
  Company Number: US-009507513-2333294

PATIENT
  Age: 69 Year
  Sex: Male

DRUGS (3)
  1. PEMBROLIZUMAB [Suspect]
     Active Substance: PEMBROLIZUMAB
     Indication: Prostatic urothelial carcinoma
     Route: 065
  2. CARBOPLATIN [Concomitant]
     Active Substance: CARBOPLATIN
     Indication: Prostatic urothelial carcinoma
     Dosage: COMPLETED 4 CYCLES
  3. GEMCITABINE [Concomitant]
     Active Substance: GEMCITABINE
     Indication: Prostatic urothelial carcinoma
     Dosage: COMPLETED 4 CYCLES

REACTIONS (1)
  - Immune-mediated arthritis [Recovering/Resolving]
